FAERS Safety Report 11679187 (Version 2)
Quarter: 2015Q4

REPORT INFORMATION
  Report Type: Spontaneous
  Country: US (occurrence: US)
  Receive Date: 20151027
  Receipt Date: 20151104
  Transmission Date: 20160304
  Serious: No
  Sender: FDA-Public Use
  Company Number: US-ELI_LILLY_AND_COMPANY-US201011001083

PATIENT
  Age: 79 Year
  Sex: Female

DRUGS (2)
  1. FORTEO [Suspect]
     Active Substance: TERIPARATIDE
     Indication: OSTEOPOROSIS
     Dosage: 20 UG, DAILY (1/D)
     Route: 065
     Dates: start: 20101012
  2. FORTEO [Suspect]
     Active Substance: TERIPARATIDE
     Dosage: 20 UG, DAILY (1/D)

REACTIONS (15)
  - Memory impairment [Unknown]
  - Head injury [Unknown]
  - Malpositioned teeth [Unknown]
  - Back pain [Unknown]
  - Trismus [Unknown]
  - Dysgeusia [Unknown]
  - Vomiting [Unknown]
  - Malaise [Unknown]
  - Tremor [Unknown]
  - Tooth fracture [Unknown]
  - Dental caries [Unknown]
  - Tooth disorder [Unknown]
  - Nervousness [Unknown]
  - Dyskinesia [Unknown]
  - Fall [Unknown]

NARRATIVE: CASE EVENT DATE: 201011
